FAERS Safety Report 9726575 (Version 2)
Quarter: 2013Q4

REPORT INFORMATION
  Report Type: Spontaneous
  Country: JP (occurrence: JP)
  Receive Date: 20131203
  Receipt Date: 20131203
  Transmission Date: 20140711
  Serious: Yes (Hospitalization)
  Sender: FDA-Public Use
  Company Number: JP-VIIV HEALTHCARE LIMITED-B0683654A

PATIENT
  Age: 6 Decade
  Sex: Male

DRUGS (5)
  1. EPZICOM [Suspect]
     Indication: HIV INFECTION
     Dosage: 1IUAX PER DAY
     Route: 048
     Dates: start: 20100816, end: 20101122
  2. KALETRA [Suspect]
     Indication: HIV INFECTION
     Route: 048
  3. DOMPERIDONE [Concomitant]
     Route: 065
  4. FLUCONAZOLE [Concomitant]
     Route: 065
  5. FOSCAVIR [Concomitant]
     Route: 065

REACTIONS (1)
  - Pancytopenia [Recovering/Resolving]
